FAERS Safety Report 8056211-X (Version None)
Quarter: 2012Q1

REPORT INFORMATION
  Report Type: 
  Country: None (occurrence: None)
  Receive Date: 20120119
  Receipt Date: 20120109
  Transmission Date: 20120608
  Serious: Yes (Hospitalization)
  Sender: FDA-Public Use
  Company Number: US-BAYER-2011-044779

PATIENT
  Age: 22 Year
  Sex: Female
  Weight: 77.098 kg

DRUGS (19)
  1. YASMIN [Suspect]
     Indication: CONTRACEPTION
     Dosage: UNK
     Dates: start: 20040507, end: 20071227
  2. YAZ [Suspect]
     Indication: PREMENSTRUAL SYNDROME
  3. PEPCID [Concomitant]
     Dosage: UNK
     Dates: start: 20090909
  4. ONDANSETRON HCL [Concomitant]
     Dosage: UNK
     Dates: start: 20090909
  5. DROSPIRENONE AND ETHINYL ESTRADIOL [Suspect]
     Indication: ACNE
  6. YAZ [Suspect]
     Indication: MENSTRUAL CYCLE MANAGEMENT
  7. YASMIN [Suspect]
     Indication: ACNE
  8. YASMIN [Suspect]
     Indication: MENSTRUAL CYCLE MANAGEMENT
  9. PHENTERMINE [Concomitant]
     Dosage: 37.5 MG, QD
  10. ZOLOFT [Concomitant]
     Dosage: 100 MG, UNK
  11. PAXIL [Concomitant]
     Dosage: UNK
     Dates: start: 20090909
  12. YAZ [Suspect]
     Indication: CONTRACEPTION
     Dosage: UNK
  13. YAZ [Suspect]
     Indication: ACNE
  14. DROSPIRENONE AND ETHINYL ESTRADIOL [Suspect]
     Indication: CONTRACEPTION
     Dosage: UNK
     Dates: start: 20071227, end: 20090930
  15. DROSPIRENONE AND ETHINYL ESTRADIOL [Suspect]
     Indication: PREMENSTRUAL SYNDROME
  16. DROSPIRENONE AND ETHINYL ESTRADIOL [Suspect]
     Indication: MENSTRUAL CYCLE MANAGEMENT
  17. VALIUM [Concomitant]
     Dosage: UNK
     Dates: start: 20090909
  18. LORTAB [Concomitant]
     Dosage: UNK
     Dates: start: 20090909
  19. YASMIN [Suspect]
     Indication: PREMENSTRUAL SYNDROME

REACTIONS (8)
  - DYSPEPSIA [None]
  - ANXIETY [None]
  - CHOLECYSTITIS CHRONIC [None]
  - PAIN [None]
  - GALLBLADDER DISORDER [None]
  - FREQUENT BOWEL MOVEMENTS [None]
  - CHEST PAIN [None]
  - ABDOMINAL PAIN [None]
